FAERS Safety Report 12786698 (Version 1)
Quarter: 2016Q3

REPORT INFORMATION
  Report Type: Spontaneous
  Country: US (occurrence: US)
  Receive Date: 20160927
  Receipt Date: 20160927
  Transmission Date: 20161109
  Serious: Yes (Hospitalization)
  Sender: FDA-Public Use
  Company Number: US-MYLANLABS-2016M1041230

PATIENT

DRUGS (1)
  1. CLOZAPINE. [Suspect]
     Active Substance: CLOZAPINE
     Indication: SCHIZOAFFECTIVE DISORDER
     Dosage: UNK

REACTIONS (6)
  - Hyperlipidaemia [Unknown]
  - Psychiatric decompensation [Unknown]
  - Weight increased [Unknown]
  - Scar [Unknown]
  - Plasmacytosis [Unknown]
  - Folliculitis [Unknown]
